FAERS Safety Report 5257673-3 (Version None)
Quarter: 2007Q1

REPORT INFORMATION
  Report Type: 
  Country: None (occurrence: None)
  Receive Date: 20070307
  Receipt Date: 20070305
  Transmission Date: 20070707
  Serious: Yes (Other)
  Sender: FDA-Public Use
  Company Number: JP-BAYER-200710138BYL

PATIENT
  Age: 80 Year
  Sex: Female
  Weight: 34 kg

DRUGS (4)
  1. AVELOX [Suspect]
     Indication: PNEUMONIA CHLAMYDIAL
     Dosage: TOTAL DAILY DOSE: 400 MG  UNIT DOSE: 400 MG
     Route: 048
     Dates: start: 20070219, end: 20070220
  2. FINIBAX [Concomitant]
     Indication: PNEUMONIA CHLAMYDIAL
     Dosage: TOTAL DAILY DOSE: 0.75 G  UNIT DOSE: 0.25 G
     Route: 041
     Dates: start: 20070219
  3. METILON [Concomitant]
     Indication: ANTIPYRESIS
     Dosage: TOTAL DAILY DOSE: 1 ML  UNIT DOSE: 1 ML
     Route: 030
     Dates: start: 20070219
  4. DIGILANOGEN C [Concomitant]
     Indication: CARDIAC FAILURE
     Dosage: TOTAL DAILY DOSE: 0.8 MG  UNIT DOSE: 0.4 MG
     Route: 041
     Dates: start: 20070219, end: 20070220

REACTIONS (4)
  - DYSPHONIA [None]
  - EYE MOVEMENT DISORDER [None]
  - LOSS OF CONSCIOUSNESS [None]
  - TONIC CONVULSION [None]
